FAERS Safety Report 4714371-X (Version None)
Quarter: 2005Q3

REPORT INFORMATION
  Report Type: 
  Country: None (occurrence: None)
  Receive Date: 20050712
  Receipt Date: 20050707
  Transmission Date: 20060218
  Serious: Yes (Life-Threatening)
  Sender: FDA-Public Use
  Company Number: 200512102GDS

PATIENT
  Age: 71 Year
  Sex: Female

DRUGS (6)
  1. PROFLOX (MOXIFLOXACIN) [Suspect]
     Indication: BRONCHITIS CHRONIC
     Dosage: 400 MG, QD, ORAL
     Route: 048
     Dates: start: 20031125, end: 20031126
  2. MASTICAL [Concomitant]
  3. ADIRO [Concomitant]
  4. MAALOX [Concomitant]
  5. ZOVIRAX [Concomitant]
  6. LIPLAT [Concomitant]

REACTIONS (1)
  - RESPIRATORY FAILURE [None]
